FAERS Safety Report 25664812 (Version 2)
Quarter: 2025Q3

REPORT INFORMATION
  Report Type: Spontaneous
  Country: US (occurrence: US)
  Receive Date: 20250811
  Receipt Date: 20250908
  Transmission Date: 20251021
  Serious: No
  Sender: INCYTE
  Company Number: US-INCYTE CORPORATION-2025IN008439

PATIENT
  Age: 43 Year
  Weight: 80.086 kg

DRUGS (4)
  1. JAKAFI [Suspect]
     Active Substance: RUXOLITINIB
     Indication: Chronic graft versus host disease
     Dosage: 5 MILLIGRAM, BID
  2. JAKAFI [Suspect]
     Active Substance: RUXOLITINIB
     Dosage: UNK, BID
     Route: 065
  3. REZUROCK [Suspect]
     Active Substance: BELUMOSUDIL
     Indication: Chronic graft versus host disease
     Route: 065
  4. REZUROCK [Suspect]
     Active Substance: BELUMOSUDIL
     Dosage: 200 MILLIGRAM, QD
     Route: 065

REACTIONS (2)
  - Product dose omission issue [Unknown]
  - Unevaluable event [Unknown]
